FAERS Safety Report 10871063 (Version 4)
Quarter: 2015Q4

REPORT INFORMATION
  Report Type: Report from Study
  Country: US (occurrence: US)
  Receive Date: 20150226
  Receipt Date: 20151110
  Transmission Date: 20160304
  Serious: Yes (Other)
  Sender: FDA-Public Use
  Company Number: US-SA-2015SA014804

PATIENT
  Age: 58 Year
  Sex: Male

DRUGS (1)
  1. AUBAGIO [Suspect]
     Active Substance: TERIFLUNOMIDE
     Indication: MULTIPLE SCLEROSIS
     Route: 048
     Dates: start: 20141017

REACTIONS (4)
  - Ankle fracture [Recovering/Resolving]
  - Fall [Unknown]
  - Joint dislocation [Unknown]
  - Joint dislocation [Unknown]

NARRATIVE: CASE EVENT DATE: 20150213
